FAERS Safety Report 5143788-7 (Version None)
Quarter: 2006Q4

REPORT INFORMATION
  Report Type: 
  Country: None (occurrence: None)
  Receive Date: 20061101
  Receipt Date: 20061101
  Transmission Date: 20070319
  Serious: Yes (Hospitalization)
  Sender: FDA-Public Use
  Company Number: None

PATIENT
  Age: 66 Year
  Sex: Male
  Weight: 99.3377 kg

DRUGS (1)
  1. BEVACIZUMAB [Suspect]
     Indication: OSTEITIS DEFORMANS
     Dosage: 1500MG  Q3WKS  IV
     Route: 042
     Dates: start: 20051209, end: 20060912

REACTIONS (4)
  - CONVULSION [None]
  - HYPERTENSION [None]
  - MENTAL STATUS CHANGES [None]
  - REVERSIBLE POSTERIOR LEUKOENCEPHALOPATHY SYNDROME [None]
